FAERS Safety Report 10801317 (Version 1)
Quarter: 2015Q1

REPORT INFORMATION
  Report Type: Spontaneous
  Country: FR (occurrence: FR)
  Receive Date: 20150217
  Receipt Date: 20150217
  Transmission Date: 20150721
  Serious: Yes (Hospitalization)
  Sender: FDA-Public Use
  Company Number: FR-JNJFOC-20150202611

PATIENT
  Age: 85 Year
  Sex: Female

DRUGS (12)
  1. DUROGESIC [Concomitant]
     Active Substance: FENTANYL
     Route: 062
     Dates: start: 20141215
  2. PASSIFLORA [Concomitant]
     Route: 048
     Dates: start: 20141114
  3. SERESTA [Concomitant]
     Active Substance: OXAZEPAM
     Dosage: 0.5 DOSE
     Route: 048
     Dates: start: 20141105
  4. VOLTARENE [Concomitant]
     Active Substance: DICLOFENAC SODIUM
     Route: 002
     Dates: start: 20141215, end: 20150107
  5. GELUPRANE [Concomitant]
     Active Substance: ACETAMINOPHEN
     Dosage: 2 DOSES 3 TIMES PER DAY
     Route: 048
  6. MIRTAZAPINE. [Concomitant]
     Active Substance: MIRTAZAPINE
     Dosage: LONG TERM
     Route: 048
  7. SPASFON LYOC [Concomitant]
     Active Substance: PHLOROGLUCINOL
     Route: 048
     Dates: start: 20140811
  8. OXYNORM [Concomitant]
     Active Substance: OXYCODONE HYDROCHLORIDE
     Route: 048
  9. DAKTARIN [Suspect]
     Active Substance: MICONAZOLE NITRATE
     Indication: ORAL FUNGAL INFECTION
     Route: 002
     Dates: start: 20141205, end: 20141231
  10. COUMADINE [Interacting]
     Active Substance: WARFARIN SODIUM
     Indication: DEEP VEIN THROMBOSIS
     Route: 048
     Dates: start: 20140517, end: 20141231
  11. DAKTARIN [Suspect]
     Active Substance: MICONAZOLE NITRATE
     Route: 002
  12. MOVICOL [Concomitant]
     Active Substance: POLYETHYLENE GLYCOL 3350\POTASSIUM CHLORIDE\SODIUM BICARBONATE\SODIUM CHLORIDE
     Route: 048

REACTIONS (3)
  - Drug interaction [Recovered/Resolved]
  - Haematuria [Recovered/Resolved]
  - International normalised ratio increased [Recovered/Resolved]

NARRATIVE: CASE EVENT DATE: 201412
